FAERS Safety Report 9447434 (Version 3)
Quarter: 2013Q3

REPORT INFORMATION
  Report Type: Spontaneous
  Country: GB (occurrence: None)
  Receive Date: 20130805
  Receipt Date: 20130925
  Transmission Date: 20140515
  Serious: Yes (Disabling, Other)
  Sender: FDA-Public Use
  Company Number: 2013AP006988

PATIENT
  Sex: Female

DRUGS (3)
  1. ALENDRONATE (ALENDRONATE SODIUM) [Suspect]
  2. AMLODIPINE (AMLODIPINE) [Concomitant]
  3. ASPIRIN (ACETYLSALICYLIC ACID) [Concomitant]

REACTIONS (9)
  - Abdominal distension [None]
  - Haematochezia [None]
  - Constipation [None]
  - Influenza like illness [None]
  - Mucous stools [None]
  - Thirst [None]
  - Fatigue [None]
  - Balance disorder [None]
  - Fatigue [None]
